FAERS Safety Report 16055611 (Version 1)
Quarter: 2019Q1

REPORT INFORMATION
  Report Type: Spontaneous
  Country: US (occurrence: US)
  Receive Date: 20190208
  Receipt Date: 20190208
  Transmission Date: 20190418
  Serious: No
  Sender: FDA-Public Use
  Company Number: None

PATIENT
  Age: 82 Year
  Sex: Female

DRUGS (1)
  1. IBRANCE [Suspect]
     Active Substance: PALBOCICLIB
     Dates: start: 20170404

REACTIONS (4)
  - Insomnia [None]
  - Hyperhidrosis [None]
  - Hot flush [None]
  - Pain [None]

NARRATIVE: CASE EVENT DATE: 20190208
